FAERS Safety Report 25589071 (Version 1)
Quarter: 2025Q3

REPORT INFORMATION
  Report Type: Report from Study
  Country: AE (occurrence: AE)
  Receive Date: 20250722
  Receipt Date: 20250722
  Transmission Date: 20251020
  Serious: Yes (Other)
  Sender: ALEXION PHARMACEUTICALS
  Company Number: AE-AstraZeneca-CH-00909931A

PATIENT
  Sex: Female

DRUGS (4)
  1. FULVESTRANT [Suspect]
     Active Substance: FULVESTRANT
     Indication: Breast cancer
     Dosage: 500 MILLIGRAM, Q4W
     Dates: start: 201603
  2. FULVESTRANT [Suspect]
     Active Substance: FULVESTRANT
  3. HERCEPTIN [Concomitant]
     Active Substance: TRASTUZUMAB
     Route: 065
  4. DENOSUMAB [Concomitant]
     Active Substance: DENOSUMAB
     Route: 065

REACTIONS (1)
  - Osteoarthritis [Unknown]

NARRATIVE: CASE EVENT DATE: 20250701
